FAERS Safety Report 18315700 (Version 2)
Quarter: 2021Q2

REPORT INFORMATION
  Report Type: Spontaneous
  Country: CA (occurrence: CA)
  Receive Date: 20200926
  Receipt Date: 20210409
  Transmission Date: 20210717
  Serious: Yes (Other)
  Sender: FDA-Public Use
  Company Number: CA-TEVA-2020-CA-1831060

PATIENT
  Age: 42 Week
  Sex: Female

DRUGS (31)
  1. METHOTREXATE. [Suspect]
     Active Substance: METHOTREXATE
     Indication: PRODUCT USED FOR UNKNOWN INDICATION
     Route: 065
  2. PERIOGARD [Suspect]
     Active Substance: CHLORHEXIDINE GLUCONATE
     Indication: PRODUCT USED FOR UNKNOWN INDICATION
     Route: 002
  3. COENZYME Q10 [Concomitant]
     Active Substance: DIETARY SUPPLEMENT\UBIDECARENONE
  4. PREDNISONE. [Concomitant]
     Active Substance: PREDNISONE
  5. SULFAMETHOXAZOLE AND TRIMETHOPRIM [Concomitant]
     Active Substance: SULFAMETHOXAZOLE\TRIMETHOPRIM
  6. ACTEMRA [Suspect]
     Active Substance: TOCILIZUMAB
     Indication: PRODUCT USED FOR UNKNOWN INDICATION
     Route: 065
  7. ARAVA [Suspect]
     Active Substance: LEFLUNOMIDE
     Indication: PRODUCT USED FOR UNKNOWN INDICATION
     Route: 065
  8. CHLORHEXIDINE GLUCONATE ORAL RINSE [Suspect]
     Active Substance: CHLORHEXIDINE GLUCONATE
     Indication: PRODUCT USED FOR UNKNOWN INDICATION
     Route: 065
  9. CIMZIA [Suspect]
     Active Substance: CERTOLIZUMAB PEGOL
     Indication: RHEUMATOID ARTHRITIS
     Route: 058
  10. ENBREL [Suspect]
     Active Substance: ETANERCEPT
     Indication: RHEUMATOID ARTHRITIS
     Route: 058
  11. DESOGESTREL/ETHINYL ESTRADIOL [Concomitant]
     Active Substance: DESOGESTREL\ETHINYL ESTRADIOL
  12. FISH OIL [Concomitant]
     Active Substance: FISH OIL
  13. SIMPONI [Suspect]
     Active Substance: GOLIMUMAB
     Indication: PRODUCT USED FOR UNKNOWN INDICATION
     Route: 058
  14. HYDROXYCHLOROQUINE SULFATE TABLETS, USP [Concomitant]
     Active Substance: HYDROXYCHLOROQUINE SULFATE
  15. VITAMIN D [Concomitant]
     Active Substance: VITAMIN D NOS
  16. OXYCODONE TEREPHTHALATE [Suspect]
     Active Substance: OXYCODONE TEREPHTHALATE
     Indication: PRODUCT USED FOR UNKNOWN INDICATION
     Route: 065
  17. LEFLUNOMIDE. [Suspect]
     Active Substance: LEFLUNOMIDE
     Indication: PRODUCT USED FOR UNKNOWN INDICATION
     Route: 065
  18. SULFAMETHOXAZOLE W/TRIMETHOPRIM [Suspect]
     Active Substance: SULFAMETHOXAZOLE\TRIMETHOPRIM
     Indication: PRODUCT USED FOR UNKNOWN INDICATION
     Route: 065
  19. ACETAMINOPHEN (PARACETAMOL), CAFFEINE [Suspect]
     Active Substance: ACETAMINOPHEN\CAFFEINE
     Indication: PRODUCT USED FOR UNKNOWN INDICATION
     Route: 065
  20. CIMZIA [Suspect]
     Active Substance: CERTOLIZUMAB PEGOL
     Route: 058
  21. CHOLECALCIFEROL [Concomitant]
     Active Substance: CHOLECALCIFEROL
  22. REACTINE /00884302/ [Concomitant]
     Active Substance: CETIRIZINE HYDROCHLORIDE
  23. CIMZIA [Suspect]
     Active Substance: CERTOLIZUMAB PEGOL
     Route: 058
  24. PANTOPRAZOLE [Concomitant]
     Active Substance: PANTOPRAZOLE
  25. VITAMIN C [Concomitant]
     Active Substance: ASCORBIC ACID
  26. ZOPICLONE [Concomitant]
     Active Substance: ZOPICLONE
  27. ABATACEPT [Suspect]
     Active Substance: ABATACEPT
     Indication: PRODUCT USED FOR UNKNOWN INDICATION
     Route: 065
  28. CIMZIA [Suspect]
     Active Substance: CERTOLIZUMAB PEGOL
     Route: 058
  29. IBUPROFEN. [Concomitant]
     Active Substance: IBUPROFEN
  30. ONE ALPHA [Concomitant]
     Active Substance: ALFACALCIDOL
  31. PANTOLOC [Concomitant]
     Active Substance: PANTOPRAZOLE SODIUM

REACTIONS (21)
  - Pain [Unknown]
  - Urticaria [Unknown]
  - Contraindicated product administered [Unknown]
  - Asthenia [Unknown]
  - Insomnia [Unknown]
  - Lower respiratory tract infection [Unknown]
  - Respiratory disorder [Unknown]
  - Abdominal pain upper [Unknown]
  - Back pain [Unknown]
  - Peripheral swelling [Unknown]
  - Body temperature increased [Unknown]
  - Diarrhoea [Unknown]
  - Ear pain [Unknown]
  - Headache [Unknown]
  - Night sweats [Unknown]
  - Rash [Unknown]
  - Pruritus [Unknown]
  - Muscle spasticity [Unknown]
  - Vomiting [Unknown]
  - Joint swelling [Unknown]
  - Sinusitis [Unknown]
